FAERS Safety Report 6024650-4 (Version None)
Quarter: 2008Q4

REPORT INFORMATION
  Report Type: 
  Country: None (occurrence: None)
  Receive Date: 20081231
  Receipt Date: 20081226
  Transmission Date: 20090506
  Serious: Yes (Other)
  Sender: FDA-Public Use
  Company Number: ES-BRISTOL-MYERS SQUIBB COMPANY-14454920

PATIENT
  Age: 47 Year
  Sex: Male

DRUGS (6)
  1. EFAVIRENZ [Suspect]
     Indication: HIV INFECTION
     Dosage: DISCONTINUED ON 18NOV03.
     Dates: start: 20020726, end: 20031118
  2. EFAVIRENZ [Suspect]
     Indication: HEPATITIS C
     Dosage: DISCONTINUED ON 18NOV03.
     Dates: start: 20020726, end: 20031118
  3. DIDANOSINE [Suspect]
     Indication: HIV INFECTION
     Dosage: DISCONTINUED ON 18NOV03.
     Dates: start: 20020726, end: 20031118
  4. DIDANOSINE [Suspect]
     Indication: HEPATITIS C
     Dosage: DISCONTINUED ON 18NOV03.
     Dates: start: 20020726, end: 20031118
  5. LAMIVUDINE [Suspect]
     Indication: HIV INFECTION
     Dosage: DISCONTINUED ON 18NOV03.
     Dates: start: 20020726, end: 20031118
  6. LAMIVUDINE [Suspect]
     Indication: HEPATITIS C
     Dosage: DISCONTINUED ON 18NOV03.
     Dates: start: 20020726, end: 20031118

REACTIONS (4)
  - ASPARTATE AMINOTRANSFERASE INCREASED [None]
  - BLOOD BILIRUBIN INCREASED [None]
  - GAMMA-GLUTAMYLTRANSFERASE INCREASED [None]
  - HYPERTRIGLYCERIDAEMIA [None]
